FAERS Safety Report 8921008 (Version 2)
Quarter: 2013Q1

REPORT INFORMATION
  Report Type: Spontaneous
  Country: US (occurrence: US)
  Receive Date: 20121121
  Receipt Date: 20130124
  Transmission Date: 20140127
  Serious: Yes (Death, Hospitalization)
  Sender: FDA-Public Use
  Company Number: US-SANOFI-AVENTIS-2012SA084077

PATIENT
  Age: 68 Year
  Sex: Male
  Weight: 138.5 kg

DRUGS (10)
  1. MULTAQ [Suspect]
     Indication: ATRIAL FIBRILLATION
     Route: 048
     Dates: start: 20111214, end: 201207
  2. SPIRONOLACTONE [Concomitant]
     Route: 048
  3. BACLOFEN [Concomitant]
     Route: 048
  4. ALBUTEROL [Concomitant]
  5. CODEINE [Concomitant]
  6. NADOLOL [Concomitant]
  7. ROPINIROLE [Concomitant]
     Route: 048
  8. LOVASTATIN [Concomitant]
     Route: 048
  9. LASIX [Concomitant]
     Route: 048
  10. LACTULOSE [Concomitant]
     Route: 048

REACTIONS (9)
  - Multi-organ failure [Fatal]
  - Post procedural complication [Fatal]
  - Hypoxia [Fatal]
  - Mental status changes [Fatal]
  - Sepsis [Unknown]
  - Renal failure acute [Not Recovered/Not Resolved]
  - Urine output decreased [Not Recovered/Not Resolved]
  - Hepatic vein thrombosis [Unknown]
  - Transplant failure [Unknown]
